FAERS Safety Report 8995103 (Version 2)
Quarter: 2013Q1

REPORT INFORMATION
  Report Type: Report from Study
  Country: US (occurrence: US)
  Receive Date: 20130102
  Receipt Date: 20130103
  Transmission Date: 20140127
  Serious: Yes (Hospitalization, Other)
  Sender: FDA-Public Use
  Company Number: US-ABBOTT-12P-163-1028503-00

PATIENT
  Age: 17 Year
  Sex: Male

DRUGS (2)
  1. HUMIRA [Suspect]
     Indication: CROHN^S DISEASE
     Dosage: INTO FAT TISSUE EVERY 14 DAYS
     Route: 058
     Dates: start: 20120919
  2. HUMIRA [Suspect]
     Dates: start: 20121221

REACTIONS (1)
  - Intestinal resection [Unknown]
